FAERS Safety Report 24425221 (Version 1)
Quarter: 2024Q4

REPORT INFORMATION
  Report Type: Report from Study
  Country: BR (occurrence: BR)
  Receive Date: 20241010
  Receipt Date: 20241010
  Transmission Date: 20250114
  Serious: Yes (Hospitalization)
  Sender: BIOGEN
  Company Number: BR-BIOGEN-2024BI01285803

PATIENT
  Sex: Female
  Weight: 103 kg

DRUGS (1)
  1. TYSABRI [Suspect]
     Active Substance: NATALIZUMAB
     Indication: Multiple sclerosis
     Dosage: I HAD THE INFUSION ON SEPTEMBER 17TH
     Route: 050

REACTIONS (2)
  - Vision blurred [Unknown]
  - Muscular weakness [Unknown]
